FAERS Safety Report 8374875-8 (Version None)
Quarter: 2012Q2

REPORT INFORMATION
  Report Type: 
  Country: None (occurrence: None)
  Receive Date: 20120521
  Receipt Date: 20120512
  Transmission Date: 20120825
  Serious: Yes (Other)
  Sender: FDA-Public Use
  Company Number: US-AMGEN-QUU350440

PATIENT
  Age: 74 Year
  Sex: Female

DRUGS (1)
  1. ENBREL [Suspect]
     Indication: PSORIATIC ARTHROPATHY
     Dosage: 50 MG, QWK
     Route: 058
     Dates: start: 20080101, end: 20110901

REACTIONS (9)
  - OXYGEN SATURATION DECREASED [None]
  - DYSPNOEA EXERTIONAL [None]
  - BURSITIS [None]
  - DRUG INEFFECTIVE [None]
  - COUGH [None]
  - CHRONIC OBSTRUCTIVE PULMONARY DISEASE [None]
  - PSORIASIS [None]
  - MUSCULOSKELETAL PAIN [None]
  - HYPERTENSION [None]
